FAERS Safety Report 4640424-0 (Version None)
Quarter: 2005Q2

REPORT INFORMATION
  Report Type: 
  Country: None (occurrence: None)
  Receive Date: 20050419
  Receipt Date: 20050406
  Transmission Date: 20051028
  Serious: Yes (Other)
  Sender: FDA-Public Use
  Company Number: 2005055562

PATIENT
  Age: 52 Year
  Sex: Female
  Weight: 68.9467 kg

DRUGS (1)
  1. BEXTRA [Suspect]
     Indication: CALCINOSIS
     Dosage: UNK (10 MG), ORAL
     Route: 048
     Dates: start: 20040501, end: 20040101

REACTIONS (1)
  - SHOULDER OPERATION [None]
